FAERS Safety Report 13840162 (Version 1)
Quarter: 2017Q3

REPORT INFORMATION
  Report Type: Spontaneous
  Country: US (occurrence: US)
  Receive Date: 20170807
  Receipt Date: 20170807
  Transmission Date: 20171127
  Serious: Yes (Other)
  Sender: FDA-Public Use
  Company Number: None

PATIENT
  Age: 60 Year
  Sex: Female
  Weight: 70.65 kg

DRUGS (9)
  1. LEG AND BACK PAIN RELIEF (HOMEOPATHIC) [Suspect]
     Active Substance: HOMEOPATHICS
     Indication: SCIATICA
     Dosage: ?          OTHER STRENGTH:NOT SPECFIED;QUANTITY:2 TABLET(S);?
     Route: 048
     Dates: start: 20170804, end: 20170804
  2. UBIQUINOL [Concomitant]
     Active Substance: UBIQUINOL
  3. MULTI-VITAMIN [Concomitant]
     Active Substance: .ALPHA.-TOCOPHEROL ACETATE, DL-\ASCORBIC ACID\CYANOCOBALAMIN\FLUORIDE ION\FOLIC ACID\NIACIN\PYRIDOXINE\RIBOFLAVIN\THIAMINE\VITAMIN A\VITAMIN D
  4. CALCIUM/MAGNESIUM [Concomitant]
     Active Substance: CALCIUM\MAGNESIUM
  5. TELMISARTIN [Concomitant]
  6. SIMVASTATIN. [Concomitant]
     Active Substance: SIMVASTATIN
  7. VESICARE [Concomitant]
     Active Substance: SOLIFENACIN SUCCINATE
  8. BIOTIN [Concomitant]
     Active Substance: BIOTIN
  9. FISH OIL [Concomitant]
     Active Substance: FISH OIL

REACTIONS (3)
  - Headache [None]
  - Vomiting [None]
  - Nausea [None]

NARRATIVE: CASE EVENT DATE: 20170804
